FAERS Safety Report 7511486-8 (Version None)
Quarter: 2011Q2

REPORT INFORMATION
  Report Type: 
  Country: None (occurrence: None)
  Receive Date: 20110531
  Receipt Date: 20110518
  Transmission Date: 20111010
  Serious: Yes (Other)
  Sender: FDA-Public Use
  Company Number: AU-JNJFOC-20110510531

PATIENT
  Age: 84 Year
  Sex: Female

DRUGS (3)
  1. ACETAMINOPHEN [Suspect]
     Indication: PRODUCT USED FOR UNKNOWN INDICATION
     Route: 065
  2. DURAGESIC-100 [Suspect]
     Indication: PRODUCT USED FOR UNKNOWN INDICATION
     Route: 062
  3. ACETAMINOPHEN [Suspect]
     Route: 065

REACTIONS (3)
  - JOINT INJURY [None]
  - FALL [None]
  - DIZZINESS [None]
